FAERS Safety Report 17410756 (Version 1)
Quarter: 2020Q1

REPORT INFORMATION
  Report Type: Spontaneous
  Country: RU (occurrence: RU)
  Receive Date: 20200212
  Receipt Date: 20200212
  Transmission Date: 20200409
  Serious: Yes (Death, Other)
  Sender: FDA-Public Use
  Company Number: RU-BRISTOL-MYERS SQUIBB COMPANY-BMS-2019-126357

PATIENT
  Age: 52 Year
  Sex: Female

DRUGS (1)
  1. NIVOLUMAB [Suspect]
     Active Substance: NIVOLUMAB
     Indication: MALIGNANT MELANOMA
     Dosage: 165 MILLIGRAM
     Route: 042
     Dates: start: 20190801, end: 20191009

REACTIONS (1)
  - Death [Fatal]

NARRATIVE: CASE EVENT DATE: 20200115
